FAERS Safety Report 5380048-3 (Version None)
Quarter: 2007Q3

REPORT INFORMATION
  Report Type: 
  Country: None (occurrence: None)
  Receive Date: 20070706
  Receipt Date: 20070703
  Transmission Date: 20080115
  Serious: Yes (Death)
  Sender: FDA-Public Use
  Company Number: JP-AVENTIS-200711750JP

PATIENT

DRUGS (1)
  1. RILUTEK [Suspect]
     Dates: start: 20060101

REACTIONS (1)
  - RESPIRATORY FAILURE [None]
